FAERS Safety Report 9748713 (Version 1)
Quarter: 2013Q4

REPORT INFORMATION
  Report Type: Spontaneous
  Country: FR (occurrence: FR)
  Receive Date: 20131212
  Receipt Date: 20131212
  Transmission Date: 20140711
  Serious: Yes (Hospitalization)
  Sender: FDA-Public Use
  Company Number: FR-SA-2013SA126124

PATIENT
  Age: 24 Year
  Sex: Female

DRUGS (6)
  1. RIFATER [Suspect]
     Indication: TUBERCULOSIS
     Dosage: DOSE:4 UNIT(S)
     Route: 048
     Dates: start: 20131023, end: 20131023
  2. RIFATER [Suspect]
     Indication: TUBERCULOSIS
     Dosage: DOSE:4 UNIT(S)
     Route: 048
     Dates: start: 20131027, end: 20131027
  3. RIFATER [Suspect]
     Indication: TUBERCULOSIS
     Dosage: DOSE:4 UNIT(S)
     Route: 048
     Dates: start: 20131030, end: 20131030
  4. MYAMBUTOL [Concomitant]
     Indication: TUBERCULOSIS
     Dosage: DOSE:2 UNIT(S)
     Route: 048
     Dates: start: 20131023, end: 20131023
  5. MYAMBUTOL [Concomitant]
     Indication: TUBERCULOSIS
     Dosage: DOSE:2 UNIT(S)
     Route: 048
     Dates: start: 20131027, end: 20131027
  6. DEXAMBUTOL [Concomitant]
     Indication: TUBERCULOSIS
     Route: 048
     Dates: start: 20131030, end: 20131030

REACTIONS (5)
  - Erythema [Recovered/Resolved]
  - Face oedema [Recovered/Resolved]
  - Rash erythematous [Recovered/Resolved]
  - Eosinophilia [Recovered/Resolved]
  - Exposure during pregnancy [Unknown]
